FAERS Safety Report 4958173-8 (Version None)
Quarter: 2006Q1

REPORT INFORMATION
  Report Type: 
  Country: None (occurrence: None)
  Receive Date: 20060330
  Receipt Date: 20060322
  Transmission Date: 20060701
  Serious: Yes (Other)
  Sender: FDA-Public Use
  Company Number: CH-ROCHE-441551

PATIENT
  Age: 81 Year
  Sex: Female
  Weight: 45.5 kg

DRUGS (5)
  1. BONVIVA [Suspect]
     Indication: OSTEOPOROSIS
     Route: 048
     Dates: start: 20060215
  2. SPIRICORT [Concomitant]
     Dosage: DOSAGE REGIMEN REPORTED AS 0.5 PER DAY
  3. METHOTREXATE [Concomitant]
  4. ECODUREX [Concomitant]
     Dosage: STRENGTH REPORTED AS 5/50. DOSAGE REGIMEN REPORTED AS 1/D
  5. LISINOPRIL [Concomitant]

REACTIONS (1)
  - SWELLING FACE [None]
